FAERS Safety Report 15836887 (Version 1)
Quarter: 2019Q1

REPORT INFORMATION
  Report Type: Spontaneous
  Country: MT (occurrence: MT)
  Receive Date: 20190117
  Receipt Date: 20190117
  Transmission Date: 20190417
  Serious: Yes (Other)
  Sender: FDA-Public Use
  Company Number: MT-TEVA-2019-MT-995764

PATIENT
  Age: 12 Year
  Sex: Male
  Weight: 52 kg

DRUGS (1)
  1. RISPERIDONE. [Suspect]
     Active Substance: RISPERIDONE
     Indication: AUTISM SPECTRUM DISORDER
     Dates: start: 20181209, end: 20181218

REACTIONS (1)
  - Drug effect decreased [Recovering/Resolving]
